FAERS Safety Report 8236629-2 (Version None)
Quarter: 2012Q1

REPORT INFORMATION
  Report Type: 
  Country: None (occurrence: None)
  Receive Date: 20120326
  Receipt Date: 20120326
  Transmission Date: 20120608
  Serious: Yes (Other)
  Sender: FDA-Public Use
  Company Number: None

PATIENT
  Age: 44 Year
  Sex: Female
  Weight: 45.3597 kg

DRUGS (1)
  1. CEFDINIR [Suspect]
     Indication: SINUSITIS
     Dosage: 300MG 2X A DAY ORAL  FEB 25 - FEB 27
     Route: 048

REACTIONS (3)
  - RASH [None]
  - PRURITUS [None]
  - NO REACTION ON PREVIOUS EXPOSURE TO DRUG [None]
